FAERS Safety Report 10778348 (Version 1)
Quarter: 2015Q1

REPORT INFORMATION
  Report Type: Report from Study
  Country: US (occurrence: US)
  Receive Date: 20150209
  Receipt Date: 20150209
  Transmission Date: 20150721
  Serious: No
  Sender: FDA-Public Use
  Company Number: US-AMGEN-USASP2014064631

PATIENT
  Age: 50 Year
  Sex: Female

DRUGS (1)
  1. NPLATE [Suspect]
     Active Substance: ROMIPLOSTIM
     Indication: IMMUNE THROMBOCYTOPENIC PURPURA
     Dosage: UNK
     Route: 065
     Dates: start: 2003

REACTIONS (7)
  - Injection site pain [Unknown]
  - Myalgia [Unknown]
  - Adverse event [Unknown]
  - Drug effect incomplete [Recovering/Resolving]
  - Pain [Unknown]
  - Malaise [Unknown]
  - Gait disturbance [Unknown]
